FAERS Safety Report 20145621 (Version 1)
Quarter: 2021Q4

REPORT INFORMATION
  Report Type: Other
  Country: JO (occurrence: None)
  Receive Date: 20211203
  Receipt Date: 20211203
  Transmission Date: 20220304
  Serious: Yes (Hospitalization)
  Sender: FDA-Public Use
  Company Number: JO-ROCHE-2964386

PATIENT
  Age: 70 Year
  Sex: Male
  Weight: 71 kg

DRUGS (5)
  1. TECENTRIQ [Suspect]
     Active Substance: ATEZOLIZUMAB
     Indication: Non-small cell lung cancer
     Route: 041
     Dates: start: 20211117
  2. AVASTIN [Suspect]
     Active Substance: BEVACIZUMAB
     Indication: Non-small cell lung cancer
     Route: 042
     Dates: start: 20211117
  3. ZESTRIL [Concomitant]
     Active Substance: LISINOPRIL
     Indication: Hypertension
  4. GLUCOPHAGE [Concomitant]
     Active Substance: METFORMIN HYDROCHLORIDE
     Indication: Diabetes mellitus
  5. GLICLAZIDE [Concomitant]
     Active Substance: GLICLAZIDE
     Indication: Diabetes mellitus

REACTIONS (3)
  - Rash [Recovering/Resolving]
  - Pruritus [Recovered/Resolved with Sequelae]
  - Dysphonia [Unknown]

NARRATIVE: CASE EVENT DATE: 20211117
